FAERS Safety Report 6696521-1 (Version None)
Quarter: 2010Q2

REPORT INFORMATION
  Report Type: 
  Country: None (occurrence: None)
  Receive Date: 20100426
  Receipt Date: 20100422
  Transmission Date: 20101027
  Serious: Yes (Death)
  Sender: FDA-Public Use
  Company Number: JP-ELI_LILLY_AND_COMPANY-JP201004004132

PATIENT
  Age: 54 Year
  Sex: Female
  Weight: 77 kg

DRUGS (11)
  1. HUMATROPE [Suspect]
     Dosage: 0.3 MG, DAILY (1/D)
     Route: 058
     Dates: start: 20061206
  2. THYRADIN [Concomitant]
     Route: 048
  3. CORTRIL [Concomitant]
     Route: 048
  4. DORNER [Concomitant]
     Route: 048
  5. ALLOPURINOL [Concomitant]
     Route: 048
  6. TRICOR [Concomitant]
     Route: 048
  7. GRAMALIL [Concomitant]
     Route: 048
  8. PHENOBARBITAL TAB [Concomitant]
     Route: 048
  9. LIPITOR [Concomitant]
     Route: 048
  10. GASTER D [Concomitant]
     Route: 048
  11. DESMOPRESSIN /00361902/ [Concomitant]

REACTIONS (5)
  - ABDOMINAL PAIN [None]
  - ADRENAL INSUFFICIENCY [None]
  - CEREBROVASCULAR DISORDER [None]
  - DEATH [None]
  - DEHYDRATION [None]
